FAERS Safety Report 8461101-4 (Version None)
Quarter: 2012Q2

REPORT INFORMATION
  Report Type: 
  Country: None (occurrence: None)
  Receive Date: 20120625
  Receipt Date: 20120615
  Transmission Date: 20120825
  Serious: Yes (Other)
  Sender: FDA-Public Use
  Company Number: US-BIOGENIDEC-2012BI021704

PATIENT
  Age: 44 Year
  Sex: Male

DRUGS (1)
  1. AVONEX [Suspect]
     Indication: MULTIPLE SCLEROSIS
     Route: 030

REACTIONS (6)
  - CONVULSION [None]
  - ARTHRALGIA [None]
  - INFLUENZA LIKE ILLNESS [None]
  - EMOTIONAL DISORDER [None]
  - GENERAL SYMPTOM [None]
  - APHASIA [None]
